FAERS Safety Report 20629460 (Version 1)
Quarter: 2022Q1

REPORT INFORMATION
  Report Type: Report from Study
  Country: US (occurrence: US)
  Receive Date: 20220323
  Receipt Date: 20220323
  Transmission Date: 20220424
  Serious: Yes (Other)
  Sender: FDA-Public Use
  Company Number: US-PFIZER INC-202200229492

PATIENT
  Age: 47 Year
  Sex: Female

DRUGS (2)
  1. BRAFTOVI [Suspect]
     Active Substance: ENCORAFENIB
     Dosage: 450 MG, DAILY (6 CAPSULES DAILY)
     Route: 048
     Dates: start: 20220121
  2. MEKTOVI [Suspect]
     Active Substance: BINIMETINIB
     Indication: Malignant melanoma
     Dosage: 45 MG, 2X/DAY (TAKE 3 TABLETS EVERY 12 HOURS)
     Route: 048
     Dates: start: 20220121

REACTIONS (22)
  - Blindness [Unknown]
  - Deafness [Unknown]
  - Asthenia [Unknown]
  - Bone pain [Unknown]
  - Abdominal distension [Unknown]
  - Chest discomfort [Unknown]
  - Confusional state [Unknown]
  - Cough [Unknown]
  - Eye pruritus [Unknown]
  - Eye swelling [Unknown]
  - Ocular hyperaemia [Unknown]
  - Feeling abnormal [Unknown]
  - Hypotension [Unknown]
  - Lip swelling [Unknown]
  - Nasal congestion [Unknown]
  - Palpitations [Unknown]
  - Rash macular [Unknown]
  - Hypoaesthesia [Unknown]
  - Swelling face [Unknown]
  - Tremor [Unknown]
  - Balance disorder [Unknown]
  - Movement disorder [Unknown]

NARRATIVE: CASE EVENT DATE: 20220101
